FAERS Safety Report 24906518 (Version 2)
Quarter: 2025Q1

REPORT INFORMATION
  Report Type: Spontaneous
  Country: JP (occurrence: None)
  Receive Date: 20250130
  Receipt Date: 20250219
  Transmission Date: 20250409
  Serious: Yes (Other)
  Sender: INCYTE
  Company Number: JP-002147023-NVSJ2025JP001294

PATIENT
  Age: 53 Year

DRUGS (2)
  1. RUXOLITINIB [Suspect]
     Active Substance: RUXOLITINIB
     Indication: Myelofibrosis
  2. RUXOLITINIB [Suspect]
     Active Substance: RUXOLITINIB

REACTIONS (2)
  - Myelosuppression [Unknown]
  - Hypocalcaemia [Unknown]
